FAERS Safety Report 5713354-0 (Version None)
Quarter: 2008Q2

REPORT INFORMATION
  Report Type: 
  Country: None (occurrence: None)
  Receive Date: 20080418
  Receipt Date: 20080225
  Transmission Date: 20081010
  Serious: Yes (Hospitalization)
  Sender: FDA-Public Use
  Company Number: TRP_05652_2008

PATIENT
  Sex: Female

DRUGS (2)
  1. RIBAVIRIN [Suspect]
     Indication: HEPATITIS C
     Dosage: 600 MG BID ORAL
     Route: 048
     Dates: start: 20071108, end: 20080224
  2. INFERGEN [Suspect]
     Indication: HEPATITIS C
     Dosage: 15 ?G QD  SUBCUTANEOUS
     Route: 058
     Dates: start: 20071108, end: 20080224

REACTIONS (5)
  - ABASIA [None]
  - BACK PAIN [None]
  - LABORATORY TEST ABNORMAL [None]
  - PAIN IN EXTREMITY [None]
  - PYREXIA [None]
